FAERS Safety Report 21498923 (Version 1)
Quarter: 2022Q4

REPORT INFORMATION
  Report Type: Spontaneous
  Country: GR (occurrence: GR)
  Receive Date: 20221024
  Receipt Date: 20221024
  Transmission Date: 20230113
  Serious: Yes (Hospitalization, Other)
  Sender: FDA-Public Use
  Company Number: GR-009507513-2210GRC005210

PATIENT
  Age: 52 Year
  Sex: Female

DRUGS (2)
  1. KEYTRUDA [Suspect]
     Active Substance: PEMBROLIZUMAB
     Indication: Renal cancer metastatic
     Dosage: UNK, CYCLICAL
  2. AXITINIB [Suspect]
     Active Substance: AXITINIB

REACTIONS (2)
  - Encephalopathy [Unknown]
  - Blood pressure increased [Recovered/Resolved]
